FAERS Safety Report 9942283 (Version 2)
Quarter: 2014Q1

REPORT INFORMATION
  Report Type: Spontaneous
  Country: GB (occurrence: GB)
  Receive Date: 20140303
  Receipt Date: 20140328
  Transmission Date: 20141002
  Serious: Yes (Death, Disabling, Other)
  Sender: FDA-Public Use
  Company Number: GB-UCBSA-113743

PATIENT
  Age: 49 Year
  Sex: Female
  Weight: 86.8 kg

DRUGS (4)
  1. CIMZIA [Suspect]
     Indication: RHEUMATOID ARTHRITIS
     Route: 058
     Dates: start: 20120724, end: 2012
  2. CIMZIA [Suspect]
     Indication: RHEUMATOID ARTHRITIS
     Route: 058
     Dates: end: 20121019
  3. AMITRIPTYLINE [Concomitant]
  4. OMEPRAZOLE [Concomitant]

REACTIONS (8)
  - Completed suicide [Fatal]
  - Hallucination, auditory [Not Recovered/Not Resolved]
  - Mania [Not Recovered/Not Resolved]
  - Delusion [Not Recovered/Not Resolved]
  - Psychotic disorder [Not Recovered/Not Resolved]
  - Personality change [Not Recovered/Not Resolved]
  - Suicide attempt [Recovered/Resolved]
  - Intentional overdose [Not Recovered/Not Resolved]
